FAERS Safety Report 17117587 (Version 1)
Quarter: 2019Q4

REPORT INFORMATION
  Report Type: Spontaneous
  Country: US (occurrence: US)
  Receive Date: 20191205
  Receipt Date: 20191205
  Transmission Date: 20200122
  Serious: No
  Sender: FDA-Public Use
  Company Number: US-BIOCODEX SA-201900959

PATIENT
  Sex: Female

DRUGS (1)
  1. DIACOMIT [Suspect]
     Active Substance: STIRIPENTOL
     Indication: PRODUCT USED FOR UNKNOWN INDICATION
     Dosage: 2 CAPSULES OF 500MG IN THE AM, 2 CAPSULES OF 500MG IN THE MIDDAY AND 3 CAPSULES OF 750MG IN THE PM
     Route: 048
     Dates: start: 20190625

REACTIONS (2)
  - Overdose [Unknown]
  - Ovarian cyst [Unknown]
